FAERS Safety Report 5848386-5 (Version None)
Quarter: 2008Q3

REPORT INFORMATION
  Report Type: 
  Country: None (occurrence: None)
  Receive Date: 20080814
  Receipt Date: 20080805
  Transmission Date: 20090109
  Serious: Yes (Death, Hospitalization)
  Sender: FDA-Public Use
  Company Number: 2008JP002156

PATIENT
  Age: 42 Year
  Sex: Male
  Weight: 64.5 kg

DRUGS (27)
  1. PROGRAF [Suspect]
     Indication: STEM CELL TRANSPLANT
     Dosage: 3.0 MG, CONTINUOUS, IV DRIP
     Route: 041
     Dates: start: 20070529, end: 20071018
  2. PROGRAF [Suspect]
     Indication: STEM CELL TRANSPLANT
     Dosage: 1 MG BIDN ORAL
     Route: 048
     Dates: start: 20071019, end: 20071109
  3. PROGRAF [Suspect]
     Indication: STEM CELL TRANSPLANT
     Dosage: 1 MG, BID, ORAL
     Route: 048
     Dates: start: 20071019, end: 20071109
  4. CELLCEPT [Suspect]
     Indication: STEM CELL TRANSPLANT
     Dosage: 1 G, BID, ORAL, 0.75 G, BID, ORAL, 0.5 G, BID, ORAL, 0.75 G, BID, ORAL
     Route: 048
     Dates: start: 20070524, end: 20070701
  5. CELLCEPT [Suspect]
     Indication: STEM CELL TRANSPLANT
     Dosage: 1 G, BID, ORAL, 0.75 G, BID, ORAL, 0.5 G, BID, ORAL, 0.75 G, BID, ORAL
     Route: 048
     Dates: start: 20070702, end: 20070715
  6. CELLCEPT [Suspect]
     Indication: STEM CELL TRANSPLANT
     Dosage: 1 G, BID, ORAL, 0.75 G, BID, ORAL, 0.5 G, BID, ORAL, 0.75 G, BID, ORAL
     Route: 048
     Dates: start: 20070716, end: 20070731
  7. CELLCEPT [Suspect]
     Indication: STEM CELL TRANSPLANT
     Dosage: 1 G, BID, ORAL, 0.75 G, BID, ORAL, 0.5 G, BID, ORAL, 0.75 G, BID, ORAL
     Route: 048
     Dates: start: 20070801, end: 20071109
  8. PREDNISOLONE [Suspect]
     Dosage: 75 MG,  /D, IV DRIP, 60 MG, UID/QD, IV DRIP, 55 MG, UID/QD, IV DRIP
     Route: 041
     Dates: start: 20070913, end: 20071015
  9. PREDNISOLONE [Suspect]
     Dosage: 75 MG,  /D, IV DRIP, 60 MG, UID/QD, IV DRIP, 55 MG, UID/QD, IV DRIP
     Route: 041
     Dates: start: 20071016, end: 20071018
  10. PREDNISOLONE [Suspect]
     Dosage: 75 MG,  /D, IV DRIP, 60 MG, UID/QD, IV DRIP, 55 MG, UID/QD, IV DRIP
     Route: 041
     Dates: start: 20070520
  11. PREDNISOLONE TAB [Suspect]
     Indication: STEM CELL TRANSPLANT
     Dosage: SEE IMAGE
     Route: 048
     Dates: start: 20071019, end: 20071025
  12. PREDNISOLONE TAB [Suspect]
     Indication: STEM CELL TRANSPLANT
     Dosage: SEE IMAGE
     Route: 048
     Dates: start: 20071026, end: 20071109
  13. REMICADE [Suspect]
     Indication: STEM CELL TRANSPLANT
     Dosage: 600 MG UID/QD, IV DRIP
     Route: 041
     Dates: start: 20070914, end: 20070914
  14. REMICADE [Suspect]
     Indication: STEM CELL TRANSPLANT
     Dosage: 600 MG UID/QD, IV DRIP
     Route: 041
     Dates: start: 20071001, end: 20071001
  15. LEVOFLOXACIN [Concomitant]
  16. DIFLUCAN (FLUCONAZOLE) CAPSULE [Concomitant]
  17. TAKEPRON (LANSOPRAZOLE) ORODISPERSIBLE CR TABLET [Concomitant]
  18. PHELLOBERIN A (CLIOQUINOL) TABLET [Concomitant]
  19. ELENTAL (VITAMINS NOS, MINERALS NOS) POWDER [Concomitant]
  20. BIOFERMIN R (STREPTOCOCCUS FAECALIS) TABLET [Concomitant]
  21. LENDORMIN (BROTIZOLAM) TABLET [Concomitant]
  22. URSO (URSODEOXYCHOLIC ACID) TABLET [Concomitant]
  23. BEZATOL (BEZAFIBRATE) TABLET [Concomitant]
  24. LASIX [Concomitant]
  25. THYRADIN S (LEVOTHYROXINE SODIUM) TABLET [Concomitant]
  26. GLAKAY (MENATETRENONE) TABLET [Concomitant]
  27. SULFAMETHOXAZOLE AND TRIMETHOPRIM [Concomitant]

REACTIONS (7)
  - BLOOD PRESSURE SYSTOLIC DECREASED [None]
  - BONE MARROW FAILURE [None]
  - BRONCHOPULMONARY ASPERGILLOSIS [None]
  - DEPRESSED LEVEL OF CONSCIOUSNESS [None]
  - HEART RATE INCREASED [None]
  - HISTIOCYTOSIS HAEMATOPHAGIC [None]
  - SEPSIS [None]
